FAERS Safety Report 20206898 (Version 1)
Quarter: 2021Q4

REPORT INFORMATION
  Report Type: Spontaneous
  Country: IT (occurrence: IT)
  Receive Date: 20211220
  Receipt Date: 20211220
  Transmission Date: 20220303
  Serious: Yes (Other)
  Sender: FDA-Public Use
  Company Number: IT-002147023-NVSC2021IT252453

PATIENT
  Sex: Female

DRUGS (2)
  1. LETROZOLE [Suspect]
     Active Substance: LETROZOLE
     Indication: Product used for unknown indication
     Dosage: UNK UNK, QD (FOR 10 YEARS)
     Route: 065
  2. Decapeptyl [Concomitant]
     Indication: Product used for unknown indication
     Dosage: UNK UNK, QMO (FOR 5 YEARS)
     Route: 065

REACTIONS (3)
  - Autoimmune thyroiditis [Unknown]
  - Type 2 diabetes mellitus [Unknown]
  - Breast discolouration [Unknown]
